FAERS Safety Report 19872223 (Version 1)
Quarter: 2021Q3

REPORT INFORMATION
  Report Type: Spontaneous
  Country: SG (occurrence: SG)
  Receive Date: 20210923
  Receipt Date: 20210923
  Transmission Date: 20211014
  Serious: Yes (Life-Threatening, Hospitalization)
  Sender: FDA-Public Use
  Company Number: SG-TEVA-2021-SG-1955207

PATIENT
  Age: 25 Year
  Sex: Female
  Weight: 53.5 kg

DRUGS (5)
  1. NAPROXEN. [Suspect]
     Active Substance: NAPROXEN
     Indication: INTENTIONAL OVERDOSE
     Route: 048
  2. HALOPERIDOL LACTATE. [Interacting]
     Active Substance: HALOPERIDOL LACTATE
     Route: 030
  3. PREGABALIN. [Interacting]
     Active Substance: PREGABALIN
     Indication: INTENTIONAL OVERDOSE
     Route: 048
  4. PARACETAMOL [Interacting]
     Active Substance: ACETAMINOPHEN
     Indication: INTENTIONAL OVERDOSE
     Route: 048
  5. HALOPERIDOL LACTATE. [Interacting]
     Active Substance: HALOPERIDOL LACTATE
     Indication: AGITATION
     Route: 030

REACTIONS (8)
  - Torticollis [Recovered/Resolved]
  - Somnolence [Recovered/Resolved]
  - Drug interaction [Recovered/Resolved]
  - Intentional overdose [Recovered/Resolved]
  - Dystonia [Recovered/Resolved]
  - Drug level increased [Recovered/Resolved]
  - Oculogyric crisis [Recovered/Resolved]
  - Agitation [Recovered/Resolved]
